FAERS Safety Report 9705231 (Version 5)
Quarter: 2014Q3

REPORT INFORMATION
  Report Type: Spontaneous
  Country: US (occurrence: US)
  Receive Date: 20131122
  Receipt Date: 20140806
  Transmission Date: 20150326
  Serious: Yes (Other)
  Sender: FDA-Public Use
  Company Number: US-BAYER-2013-141081

PATIENT
  Age: 23 Year
  Sex: Female

DRUGS (5)
  1. TYLENOL WITH CODEINE [Concomitant]
     Active Substance: ACETAMINOPHEN\CODEINE PHOSPHATE
  2. MIRENA [Suspect]
     Active Substance: LEVONORGESTREL
     Dosage: 20 MCG/24HR, CONT
     Route: 015
     Dates: start: 201007, end: 20110630
  3. VEETIDS [Concomitant]
     Active Substance: PENICILLIN V POTASSIUM
  4. FEMCON FE [Concomitant]
     Active Substance: ETHINYL ESTRADIOL\NORETHINDRONE ACETATE
  5. MOTRIN [Concomitant]
     Active Substance: IBUPROFEN

REACTIONS (8)
  - Pain [None]
  - Psychogenic pain disorder [None]
  - Anhedonia [None]
  - Injury [None]
  - Device dislocation [None]
  - Emotional distress [None]
  - Device defective [None]
  - Genital haemorrhage [None]
